FAERS Safety Report 9782514 (Version 1)
Quarter: 2013Q4

REPORT INFORMATION
  Report Type: Report from Study
  Country: MX (occurrence: MX)
  Receive Date: 20131226
  Receipt Date: 20131226
  Transmission Date: 20140711
  Serious: Yes (Other)
  Sender: FDA-Public Use
  Company Number: PHHY2013MX151431

PATIENT
  Age: 64 Year
  Sex: Male

DRUGS (3)
  1. EXFORGE HCT [Suspect]
     Indication: HYPERTENSION
     Dosage: 1 DF, DAILY (160 MG VALS, 5 MG AMLO AND 12.5 MG HYDR)
     Route: 048
     Dates: start: 201312, end: 20131219
  2. EXFORGE HCT [Suspect]
     Dosage: 1 DF, DAILY (UNK MG VALS, 10 MG AMLO AND UNK MG HYDR)
     Route: 048
  3. JANUMET [Concomitant]
     Indication: DIABETES MELLITUS
     Dosage: 2, DAILY

REACTIONS (2)
  - Blindness unilateral [Not Recovered/Not Resolved]
  - Hypertension [Unknown]
